FAERS Safety Report 9197805 (Version 2)
Quarter: 2013Q2

REPORT INFORMATION
  Report Type: Spontaneous
  Country: FR (occurrence: FR)
  Receive Date: 20130328
  Receipt Date: 20130404
  Transmission Date: 20140414
  Serious: Yes (Life-Threatening, Hospitalization)
  Sender: FDA-Public Use
  Company Number: FR-PFIZER INC-2013095571

PATIENT
  Age: 31 Year
  Sex: Female

DRUGS (3)
  1. ADEPAL [Suspect]
     Indication: ORAL CONTRACEPTION
     Dosage: UNK
     Route: 048
     Dates: end: 20121101
  2. XANAX [Concomitant]
  3. PAROXETINE CHLORHYDRATE [Concomitant]

REACTIONS (1)
  - Cerebral infarction [Not Recovered/Not Resolved]
